FAERS Safety Report 17661917 (Version 1)
Quarter: 2020Q2

REPORT INFORMATION
  Report Type: Spontaneous
  Country: US (occurrence: US)
  Receive Date: 20200413
  Receipt Date: 20200413
  Transmission Date: 20200713
  Serious: Yes (Hospitalization)
  Sender: FDA-Public Use
  Company Number: None

PATIENT
  Age: 64 Year
  Sex: Female
  Weight: 107.14 kg

DRUGS (7)
  1. EVEROLIMUS. [Suspect]
     Active Substance: EVEROLIMUS
     Indication: BREAST CANCER
     Route: 048
     Dates: start: 20200226, end: 20200413
  2. DILTIAZEM 120MG [Concomitant]
  3. LORAZEPAM 1MG [Concomitant]
     Active Substance: LORAZEPAM
  4. EFFEXOR [Concomitant]
     Active Substance: VENLAFAXINE HYDROCHLORIDE
  5. RISPERIDONE 0.25MG [Concomitant]
     Active Substance: RISPERIDONE
  6. ASPIRIN 81MG [Concomitant]
     Active Substance: ASPIRIN
  7. VITAMIN D (CHOLECALCIFEROL) 1000UNIT [Concomitant]

REACTIONS (1)
  - Colon operation [None]

NARRATIVE: CASE EVENT DATE: 20200413
